FAERS Safety Report 14475635 (Version 1)
Quarter: 2018Q1

REPORT INFORMATION
  Report Type: Spontaneous
  Country: US (occurrence: US)
  Receive Date: 20180201
  Receipt Date: 20180201
  Transmission Date: 20180509
  Serious: Yes (Other)
  Sender: FDA-Public Use
  Company Number: US-DSJP-DSU-2017-146408

PATIENT

DRUGS (2)
  1. BENICAR HCT [Suspect]
     Active Substance: HYDROCHLOROTHIAZIDE\OLMESARTAN MEDOXOMIL
     Indication: PRODUCT USED FOR UNKNOWN INDICATION
     Dosage: 20/12.5 MG, UNK
     Dates: start: 20090703, end: 20150622
  2. BENICAR HCT [Suspect]
     Active Substance: HYDROCHLOROTHIAZIDE\OLMESARTAN MEDOXOMIL
     Dosage: 40/12.5, UNK
     Dates: start: 20090703, end: 20150622

REACTIONS (4)
  - Peptic ulcer [Unknown]
  - Sprue-like enteropathy [Recovered/Resolved]
  - Gastritis erosive [Unknown]
  - Oesophagitis [Unknown]

NARRATIVE: CASE EVENT DATE: 20130418
